FAERS Safety Report 5615705-4 (Version None)
Quarter: 2008Q1

REPORT INFORMATION
  Report Type: 
  Country: None (occurrence: None)
  Receive Date: 20080206
  Receipt Date: 20080130
  Transmission Date: 20080703
  Serious: Yes (Other)
  Sender: FDA-Public Use
  Company Number: US-JNJFOC-20080200178

PATIENT
  Sex: Male
  Weight: 86.18 kg

DRUGS (6)
  1. LEVAQUIN [Suspect]
     Indication: SINUSITIS
     Route: 065
  2. DILANTIN [Interacting]
     Route: 065
  3. DILANTIN [Interacting]
     Indication: CONVULSION
     Route: 065
  4. PHENYTOIN SODIUM [Interacting]
     Indication: DRUG USE FOR UNKNOWN INDICATION
     Route: 065
  5. CLARITIN [Concomitant]
     Indication: HYPERSENSITIVITY
     Route: 065
  6. PRILOSEC [Concomitant]
     Indication: HYPERCHLORHYDRIA
     Route: 065

REACTIONS (2)
  - CONVULSION [None]
  - DRUG INTERACTION [None]
